FAERS Safety Report 8094651-3 (Version None)
Quarter: 2012Q1

REPORT INFORMATION
  Report Type: 
  Country: None (occurrence: None)
  Receive Date: 20120126
  Receipt Date: 20120116
  Transmission Date: 20120608
  Serious: Yes (Hospitalization)
  Sender: FDA-Public Use
  Company Number: 2012MA000805

PATIENT
  Age: 54 Year
  Sex: Female

DRUGS (2)
  1. CITALOPRAM HYDROBROMIDE [Suspect]
     Indication: PSYCHOTIC DISORDER
     Dosage: 20 MG;QD
  2. ZOPICLONE [Concomitant]

REACTIONS (14)
  - ALCOHOL USE [None]
  - JUGULAR VEIN DISTENSION [None]
  - BUNDLE BRANCH BLOCK LEFT [None]
  - VENTRICULAR TACHYCARDIA [None]
  - VENTRICULAR FIBRILLATION [None]
  - VENTRICULAR DYSFUNCTION [None]
  - INTENTIONAL OVERDOSE [None]
  - BLOOD PRESSURE DECREASED [None]
  - OXYGEN SATURATION DECREASED [None]
  - ELECTROCARDIOGRAM QT PROLONGED [None]
  - ALTERED STATE OF CONSCIOUSNESS [None]
  - METABOLIC ACIDOSIS [None]
  - HYPERLACTACIDAEMIA [None]
  - HYPOKALAEMIA [None]
